FAERS Safety Report 7313155-6 (Version None)
Quarter: 2011Q1

REPORT INFORMATION
  Report Type: 
  Country: None (occurrence: None)
  Receive Date: 20110225
  Receipt Date: 20110216
  Transmission Date: 20110831
  Serious: Yes (Hospitalization)
  Sender: FDA-Public Use
  Company Number: JP-ELI_LILLY_AND_COMPANY-JP201102004564

PATIENT

DRUGS (1)
  1. HUMALOG MIX 50/50 [Suspect]
     Dosage: UNK, UNKNOWN
     Route: 058

REACTIONS (2)
  - HOSPITALISATION [None]
  - OVERDOSE [None]
